FAERS Safety Report 4950506-1 (Version None)
Quarter: 2006Q1

REPORT INFORMATION
  Report Type: 
  Country: None (occurrence: None)
  Receive Date: 20060322
  Receipt Date: 20060314
  Transmission Date: 20060701
  Serious: Yes (Other)
  Sender: FDA-Public Use
  Company Number: GB-GLAXOSMITHKLINE-B0415866A

PATIENT
  Age: 62 Year
  Sex: Female

DRUGS (5)
  1. AUGMENTIN '125' [Suspect]
     Indication: SQUAMOUS CELL CARCINOMA
     Dosage: 375MG PER DAY
     Route: 048
     Dates: start: 20060222, end: 20060224
  2. ENOXAPARIN SODIUM [Concomitant]
     Indication: PROPHYLAXIS
     Dosage: 20MG PER DAY
     Route: 058
     Dates: start: 20060221
  3. CYCLOSPORINE [Concomitant]
     Indication: PROPHYLAXIS AGAINST TRANSPLANT REJECTION
     Dosage: 100MG UNKNOWN
     Route: 048
  4. AZATHIOPRINE [Concomitant]
     Indication: PROPHYLAXIS AGAINST TRANSPLANT REJECTION
     Dosage: 100MG PER DAY
     Route: 048
  5. AMOXICILLIN [Concomitant]
     Route: 048
     Dates: start: 20060214, end: 20060221

REACTIONS (2)
  - LIVER FUNCTION TEST ABNORMAL [None]
  - MALAISE [None]
